FAERS Safety Report 4462141-2 (Version None)
Quarter: 2004Q3

REPORT INFORMATION
  Report Type: 
  Country: None (occurrence: None)
  Receive Date: 20040929
  Receipt Date: 20040921
  Transmission Date: 20050211
  Serious: Yes (Hospitalization)
  Sender: FDA-Public Use
  Company Number: CA-MERCK-0409CAN00069

PATIENT
  Age: 60 Year
  Sex: Male

DRUGS (3)
  1. ASPIRIN [Concomitant]
     Route: 065
     Dates: start: 20010101
  2. PROSCAR [Suspect]
     Indication: BENIGN PROSTATIC HYPERPLASIA
     Route: 048
     Dates: start: 20040624
  3. TAMSULOSIN HYDROCHLORIDE [Concomitant]
     Route: 048
     Dates: start: 20010201

REACTIONS (5)
  - DIVERTICULUM [None]
  - DUODENITIS [None]
  - GASTROINTESTINAL ULCER [None]
  - HAEMODYNAMIC INSTABILITY [None]
  - LOWER GASTROINTESTINAL HAEMORRHAGE [None]
